FAERS Safety Report 8032239-0 (Version None)
Quarter: 2012Q1

REPORT INFORMATION
  Report Type: 
  Country: None (occurrence: None)
  Receive Date: 20120110
  Receipt Date: 20111230
  Transmission Date: 20120608
  Serious: No
  Sender: FDA-Public Use
  Company Number: US-BIOGENIDEC-2012BI000171

PATIENT
  Sex: Female

DRUGS (1)
  1. TYSABRI [Suspect]
     Indication: MULTIPLE SCLEROSIS
     Route: 042
     Dates: start: 20111130

REACTIONS (12)
  - WEIGHT DECREASED [None]
  - INSOMNIA [None]
  - ABASIA [None]
  - DISTURBANCE IN ATTENTION [None]
  - GENERAL SYMPTOM [None]
  - MENTAL IMPAIRMENT [None]
  - HEADACHE [None]
  - DIZZINESS [None]
  - DECREASED APPETITE [None]
  - NAUSEA [None]
  - FATIGUE [None]
  - LUNG INFECTION [None]
